FAERS Safety Report 6456139-2 (Version None)
Quarter: 2009Q4

REPORT INFORMATION
  Report Type: 
  Country: None (occurrence: None)
  Receive Date: 20091125
  Receipt Date: 20091119
  Transmission Date: 20100525
  Serious: Yes (Hospitalization)
  Sender: FDA-Public Use
  Company Number: FR-BAYER-200940012GPV

PATIENT
  Age: 76 Year
  Sex: Male

DRUGS (9)
  1. CIFLOX [Suspect]
     Indication: SEPSIS
     Dosage: TOTAL DAILY DOSE: 1000 MG  UNIT DOSE: 500 MG
     Route: 048
     Dates: start: 20091010
  2. AMAREL [Suspect]
     Indication: DRUG USE FOR UNKNOWN INDICATION
     Dosage: TOTAL DAILY DOSE: 4 MG  UNIT DOSE: 4 MG
     Route: 065
  3. GLUCOPHAGE [Suspect]
     Indication: DRUG USE FOR UNKNOWN INDICATION
     Dosage: TOTAL DAILY DOSE: 3000 MG  UNIT DOSE: 1000 MG
     Route: 065
  4. HYZAAR [Concomitant]
     Dosage: 15/12,5 MG / DAY
     Route: 065
  5. LERCANIDIPINE [Concomitant]
     Dosage: AS USED: 20 MG  UNIT DOSE: 20 MG
     Route: 065
  6. TEMERIT [Concomitant]
     Dosage: AS USED: 5 MG  UNIT DOSE: 5 MG
     Route: 065
  7. ALDACTONE [Concomitant]
     Dosage: AS USED: 25 MG  UNIT DOSE: 25 MG
     Route: 065
  8. KARDEGIC [Concomitant]
     Dosage: AS USED: 160 MG  UNIT DOSE: 16 MG
     Route: 065
  9. FLAGYL [Concomitant]
     Indication: SEPSIS
     Dosage: TOTAL DAILY DOSE: 2000 MG  UNIT DOSE: 500 MG
     Route: 065
     Dates: start: 20091001

REACTIONS (5)
  - FATIGUE [None]
  - HYPERHIDROSIS [None]
  - HYPOGLYCAEMIA [None]
  - RESPIRATORY FAILURE [None]
  - SPEECH DISORDER [None]
